FAERS Safety Report 19407997 (Version 1)
Quarter: 2021Q2

REPORT INFORMATION
  Report Type: Spontaneous
  Country: US (occurrence: US)
  Receive Date: 20210611
  Receipt Date: 20210611
  Transmission Date: 20210717
  Serious: No
  Sender: FDA-Public Use
  Company Number: NVSC2021US127826

PATIENT
  Age: 50 Day
  Sex: Female

DRUGS (2)
  1. SOLU?MEDROL [Concomitant]
     Active Substance: METHYLPREDNISOLONE SODIUM SUCCINATE
     Indication: PROPHYLAXIS
     Route: 065
  2. KESIMPTA [Suspect]
     Active Substance: OFATUMUMAB
     Indication: MULTIPLE SCLEROSIS
     Dosage: 20 MG, QW BENEATH THE SKIN USUALLY VIA INJECTION
     Route: 058
     Dates: start: 20210524

REACTIONS (1)
  - Throat tightness [Recovered/Resolved]

NARRATIVE: CASE EVENT DATE: 20210524
